FAERS Safety Report 4497978-7 (Version None)
Quarter: 2004Q4

REPORT INFORMATION
  Report Type: 
  Country: None (occurrence: None)
  Receive Date: 20041105
  Receipt Date: 20041022
  Transmission Date: 20050328
  Serious: Yes (Hospitalization)
  Sender: FDA-Public Use
  Company Number: 209874

PATIENT
  Age: 67 Year
  Sex: Female
  Weight: 48.7 kg

DRUGS (12)
  1. BEVACIZUMAB (BEVACIZUMAB) PWDR + SOLVENT,INFUSION SOLN, 100MG [Suspect]
     Indication: COLORECTAL CANCER METASTATIC
     Dosage: 5 MG/KG, Q2W, INTRAVENOUS
     Route: 042
     Dates: start: 20040415
  2. OXALIPLATIN [Suspect]
     Indication: COLORECTAL CANCER METASTATIC
     Dosage: 85 MG/M2, Q2W, INTRAVENOUS
     Route: 042
     Dates: start: 20040415
  3. FLUOROURACIL [Suspect]
     Indication: COLORECTAL CANCER METASTATIC
     Dosage: SEE IMAGE
     Route: 042
     Dates: start: 20040415
  4. LEUCOVORIN CALCIUM [Suspect]
     Indication: COLORECTAL CANCER METASTATIC
     Dosage: 20 MG/M2, 1/WEEK, INTRAVENOUS
     Route: 042
     Dates: start: 20040415
  5. LORAZEPAM [Concomitant]
  6. HYDROCODONE + ACETAMINOPHEN (HYDROCODONE BITARTRATE, ACETAMINOPHEN) [Concomitant]
  7. MEGESTROL (MEGESTROL ACETATE) [Concomitant]
  8. PANTOPRAZOLE (PANTOPRAZOLE) [Concomitant]
  9. LOPERAMIDE [Concomitant]
  10. PROMETHEZINE HCL [Concomitant]
  11. ONDANSETRON HCL [Concomitant]
  12. METOCLOPRAMIDE (METOCLOPRAMIDE HYDROCHLORIDE) [Concomitant]

REACTIONS (12)
  - ANOREXIA [None]
  - ASTHENIA [None]
  - CHEST PAIN [None]
  - DEHYDRATION [None]
  - ELECTROCARDIOGRAM T WAVE INVERSION [None]
  - HYPOKALAEMIA [None]
  - HYPOMAGNESAEMIA [None]
  - NAUSEA [None]
  - OESOPHAGITIS [None]
  - OXYGEN SATURATION DECREASED [None]
  - PULMONARY MASS [None]
  - VOMITING [None]
